FAERS Safety Report 10191886 (Version 1)
Quarter: 2014Q2

REPORT INFORMATION
  Report Type: Spontaneous
  Country: US (occurrence: US)
  Receive Date: 20140523
  Receipt Date: 20140523
  Transmission Date: 20141212
  Serious: Yes (Hospitalization)
  Sender: FDA-Public Use
  Company Number: US-GLAXOSMITHKLINE-A1074240A

PATIENT
  Age: 66 Year
  Sex: Male

DRUGS (1)
  1. MEPRON [Suspect]
     Indication: LUNG TRANSPLANT
     Route: 065
     Dates: start: 20131223

REACTIONS (1)
  - Transplant [Unknown]
